FAERS Safety Report 4541291-6 (Version None)
Quarter: 2004Q4

REPORT INFORMATION
  Report Type: 
  Country: None (occurrence: None)
  Receive Date: 20041228
  Receipt Date: 20041217
  Transmission Date: 20050328
  Serious: Yes (Hospitalization)
  Sender: FDA-Public Use
  Company Number: MEDI-0002607

PATIENT
  Age: 49 Year
  Sex: Male
  Weight: 102.5 kg

DRUGS (12)
  1. ETHYOL [Suspect]
     Indication: CHEMOTHERAPY
     Dosage: SUBCUTANEOUS
     Route: 058
     Dates: start: 20041130, end: 20041213
  2. ETHYOL [Suspect]
     Indication: RADIOTHERAPY
     Dosage: SUBCUTANEOUS
     Route: 058
     Dates: start: 20041130, end: 20041213
  3. ETHYOL [Suspect]
     Indication: CHEMOTHERAPY
     Dosage: SUBCUTANEOUS
     Route: 058
     Dates: start: 20041216, end: 20041216
  4. ETHYOL [Suspect]
     Indication: RADIOTHERAPY
     Dosage: SUBCUTANEOUS
     Route: 058
     Dates: start: 20041216, end: 20041216
  5. CHEMOTHERAPY [Concomitant]
  6. RADIATION THERAPY [Concomitant]
  7. DEXAMETHASONE [Concomitant]
  8. ZOFRAN [Concomitant]
  9. EMEND [Concomitant]
  10. PROCHLORPERAZINE [Concomitant]
  11. GEL KAM(STANNOUS FLUORIDE) [Concomitant]
  12. NEXIUM [Concomitant]

REACTIONS (7)
  - BLOOD TEST ABNORMAL [None]
  - CHILLS [None]
  - DRUG TOXICITY [None]
  - HYPOTENSION [None]
  - MENINGITIS [None]
  - PYREXIA [None]
  - RASH ERYTHEMATOUS [None]
